FAERS Safety Report 5570582-5 (Version None)
Quarter: 2007Q4

REPORT INFORMATION
  Report Type: 
  Country: None (occurrence: None)
  Receive Date: 20071221
  Receipt Date: 20071219
  Transmission Date: 20080405
  Serious: Yes (Death, Hospitalization, Other)
  Sender: FDA-Public Use
  Company Number: FR-BRISTOL-MYERS SQUIBB COMPANY-14019640

PATIENT
  Age: 47 Year
  Sex: Male

DRUGS (7)
  1. AMIKLIN INJ [Suspect]
     Indication: PYELONEPHRITIS
     Route: 042
     Dates: start: 20071102, end: 20071107
  2. CORDARONE [Suspect]
     Indication: ATRIAL FLUTTER
     Route: 042
     Dates: start: 20071030, end: 20071109
  3. INVANZ [Suspect]
     Indication: PYELONEPHRITIS
     Dates: start: 20071103, end: 20071109
  4. MIDAZOLAM HCL [Suspect]
     Dosage: 1 DOSAGE FORM=2500 U/D
     Route: 042
     Dates: start: 20071029, end: 20071107
  5. SOLUPRED [Concomitant]
  6. INEXIUM [Concomitant]
  7. HEPARIN [Concomitant]

REACTIONS (3)
  - ARRHYTHMIA [None]
  - RENAL FAILURE [None]
  - TRANSAMINASES INCREASED [None]
